FAERS Safety Report 19465123 (Version 1)
Quarter: 2021Q2

REPORT INFORMATION
  Report Type: Spontaneous
  Country: CN (occurrence: CN)
  Receive Date: 20210627
  Receipt Date: 20210627
  Transmission Date: 20210717
  Serious: Yes (Hospitalization)
  Sender: FDA-Public Use
  Company Number: NVSC2021CN139577

PATIENT
  Age: 40 Year
  Sex: Female
  Weight: 56 kg

DRUGS (4)
  1. ESOMEPRAZOLE MAGNESIUM. [Suspect]
     Active Substance: ESOMEPRAZOLE MAGNESIUM
     Indication: HELICOBACTER INFECTION
     Dosage: 20 MG, BID(ENTERIC COATED TABLETS)
     Route: 048
     Dates: start: 20210508, end: 20210525
  2. BISMUTH POTASSIUM CITRATE [Concomitant]
     Active Substance: BISMUTH SUBCITRATE
     Indication: HELICOBACTER INFECTION
     Dosage: 0.6 G, BID
     Route: 048
     Dates: start: 20210508, end: 20210525
  3. AMOKSIKLAV [Suspect]
     Active Substance: AMOXICILLIN\CLAVULANATE POTASSIUM
     Indication: HELICOBACTER INFECTION
     Dosage: 1 G, BID
     Route: 048
     Dates: start: 20210508, end: 20210525
  4. CLARITHROMYCIN. [Suspect]
     Active Substance: CLARITHROMYCIN
     Indication: HELICOBACTER INFECTION
     Dosage: 0.5 G, BID
     Route: 048
     Dates: start: 20210508, end: 20210525

REACTIONS (3)
  - Retching [Recovering/Resolving]
  - Nausea [Recovering/Resolving]
  - Hepatic function abnormal [Recovering/Resolving]

NARRATIVE: CASE EVENT DATE: 20210525
